FAERS Safety Report 22376238 (Version 4)
Quarter: 2023Q2

REPORT INFORMATION
  Report Type: Report from Study
  Country: US (occurrence: US)
  Receive Date: 20230527
  Receipt Date: 20230626
  Transmission Date: 20230722
  Serious: No
  Sender: FDA-Public Use
  Company Number: US-002147023-NVSC2023US119785

PATIENT
  Age: 59 Year
  Sex: Female

DRUGS (2)
  1. COSENTYX [Suspect]
     Active Substance: SECUKINUMAB
     Indication: Psoriasis
     Dosage: 150 MG, QW (5 WEEKS THEN ONCE A MONTH)
     Route: 042
     Dates: start: 20230522
  2. COSENTYX [Suspect]
     Active Substance: SECUKINUMAB
     Dosage: UNK UNK, QMO
     Route: 058

REACTIONS (4)
  - Rash [Unknown]
  - Pruritus [Unknown]
  - Incorrect route of product administration [Unknown]
  - Urticaria [Unknown]

NARRATIVE: CASE EVENT DATE: 20230522
